FAERS Safety Report 7326672-X (Version None)
Quarter: 2011Q1

REPORT INFORMATION
  Report Type: 
  Country: None (occurrence: None)
  Receive Date: 20110223
  Receipt Date: 20110211
  Transmission Date: 20110831
  Serious: Yes (Other)
  Sender: FDA-Public Use
  Company Number: UTC-005236

PATIENT
  Age: 61 Year
  Sex: Female
  Weight: 145.6 kg

DRUGS (4)
  1. WARFARIN (WARFARIN) [Concomitant]
  2. DIURETICS (DIURETICS) [Concomitant]
  3. REMODULIN [Suspect]
  4. REMODULIN [Suspect]
     Dosage: 80.64 UG/KG (0.056 UG/KG, 1 IN 1 MIN), SUBCUTANEOUS
     Route: 058
     Dates: start: 20071022

REACTIONS (1)
  - DEVICE RELATED INFECTION [None]
